FAERS Safety Report 5908601-6 (Version None)
Quarter: 2008Q4

REPORT INFORMATION
  Report Type: 
  Country: None (occurrence: None)
  Receive Date: 20081001
  Receipt Date: 20080919
  Transmission Date: 20090506
  Serious: No
  Sender: FDA-Public Use
  Company Number: TPA2008A01494

PATIENT
  Age: 50 Year
  Sex: Female
  Weight: 82.1011 kg

DRUGS (3)
  1. ROZEREM [Suspect]
     Indication: INSOMNIA
     Dosage: 8 MG, QHS PRN, PER ORAL
     Route: 048
     Dates: start: 20080912, end: 20080912
  2. ROZEREM [Suspect]
     Indication: INSOMNIA
     Dosage: 8 MG, QHS PRN, PER ORAL
     Route: 048
     Dates: start: 20080913, end: 20080913
  3. ROZEREM [Suspect]
     Indication: INSOMNIA
     Dosage: 8 MG, QHS PRN, PER ORAL
     Route: 048
     Dates: start: 20080914, end: 20080916

REACTIONS (2)
  - DRUG INEFFECTIVE [None]
  - INCORRECT DOSE ADMINISTERED [None]
